FAERS Safety Report 12975491 (Version 1)
Quarter: 2016Q4

REPORT INFORMATION
  Report Type: Spontaneous
  Country: US (occurrence: US)
  Receive Date: 20161122
  Receipt Date: 20161122
  Transmission Date: 20170207
  Serious: Yes (Hospitalization)
  Sender: FDA-Public Use
  Company Number: None

PATIENT
  Sex: Male

DRUGS (2)
  1. ISONIAZID. [Suspect]
     Active Substance: ISONIAZID
     Indication: LIVER INJURY
     Route: 048
     Dates: start: 20150625, end: 20160201
  2. ETANERCEPT [Suspect]
     Active Substance: ETANERCEPT
     Indication: LIVER INJURY
     Dosage: OTHER
     Dates: start: 20150914, end: 20160201

REACTIONS (3)
  - Acute on chronic liver failure [None]
  - Dizziness [None]
  - Drug-induced liver injury [None]

NARRATIVE: CASE EVENT DATE: 20160201
